FAERS Safety Report 24419205 (Version 2)
Quarter: 2024Q4

REPORT INFORMATION
  Report Type: Report from Study
  Country: US (occurrence: US)
  Receive Date: 20241009
  Receipt Date: 20241018
  Transmission Date: 20250114
  Serious: No
  Sender: ROCHE
  Company Number: US-ROCHE-3491980

PATIENT
  Age: 64 Year
  Sex: Male

DRUGS (1)
  1. CATHFLO ACTIVASE [Suspect]
     Active Substance: ALTEPLASE
     Indication: Pleural effusion
     Dosage: DATE OF SERVICE: 07/AUG/2023, 08/AUG/2023
     Route: 034
     Dates: start: 20230806

REACTIONS (3)
  - Off label use [Unknown]
  - Off label use [Unknown]
  - No adverse event [Unknown]
